FAERS Safety Report 23671283 (Version 4)
Quarter: 2024Q4

REPORT INFORMATION
  Report Type: Report from Study
  Country: US (occurrence: US)
  Receive Date: 20240326
  Receipt Date: 20241213
  Transmission Date: 20250115
  Serious: Yes (Hospitalization, Other)
  Sender: UCB
  Company Number: US-UCBSA-2024014461

PATIENT
  Sex: Male
  Weight: 52 kg

DRUGS (30)
  1. FINTEPLA [Suspect]
     Active Substance: FENFLURAMINE
     Indication: Lennox-Gastaut syndrome
     Dosage: 6 MILLILITER, 2X/DAY (BID)
     Dates: start: 202205, end: 20241126
  2. BRIVIACT [Suspect]
     Active Substance: BRIVARACETAM
     Indication: Seizure
     Dosage: 50 MILLIGRAM, 2X/DAY (BID)
     Dates: start: 202305
  3. BRIVIACT [Suspect]
     Active Substance: BRIVARACETAM
     Dosage: 60 MILLIGRAM, 3X/DAY (TID)
     Dates: start: 202307
  4. BRIVIACT [Suspect]
     Active Substance: BRIVARACETAM
     Dosage: 75 MILLIGRAM, 3X/DAY (TID)
     Dates: start: 202307
  5. BRIVIACT [Suspect]
     Active Substance: BRIVARACETAM
     Dosage: 150 MILLIGRAM, 3X/DAY (TID)
     Dates: start: 202309
  6. BRIVIACT [Suspect]
     Active Substance: BRIVARACETAM
     Dosage: 175 MILLIGRAM, 3X/DAY (TID)
  7. BRIVIACT [Suspect]
     Active Substance: BRIVARACETAM
     Dosage: 200 MG IN THE MORNING AND 200 MG IN NOON AND 300 MG IN NIGHT, 3X/DAY (TID)
     Route: 048
     Dates: start: 20240528, end: 20240705
  8. BRIVIACT [Suspect]
     Active Substance: BRIVARACETAM
     Dosage: 50 MILLIGRAM, 3X/DAY (TID)
  9. KEPPRA [Suspect]
     Active Substance: LEVETIRACETAM
     Indication: Seizure
     Dosage: 1000 MILLIGRAM 2 IIN MORNING 2 IN MIDDAY AND 1.5 AT NIGHT
     Route: 048
     Dates: start: 20240528, end: 20240705
  10. KEPPRA [Suspect]
     Active Substance: LEVETIRACETAM
     Dosage: 1 TABLET AT NIGHT
  11. KEPPRA [Suspect]
     Active Substance: LEVETIRACETAM
     Dosage: REDUCTION TO 2000- MILLIGRAM IN THE MORNING, 15000 IN THE NOON  AND 2000 MILLIGRAM IN THE NIGHT
  12. KEPPRA [Suspect]
     Active Substance: LEVETIRACETAM
     Dosage: 2000 MILLIGRAM IN THE MORNING, 2000 MILLIGRAM IN NOON AND 1750 IN THE NIGHT
  13. ONFI [Concomitant]
     Active Substance: CLOBAZAM
     Indication: Product used for unknown indication
     Dosage: 7.5 MILLIGRAM, 2X/DAY (BID)
     Route: 048
     Dates: start: 20240528, end: 20240705
  14. ONFI [Concomitant]
     Active Substance: CLOBAZAM
     Dosage: 5 MILLIGRAM, 2X/DAY (BID)
     Dates: start: 20231223
  15. VALTOCO [Concomitant]
     Active Substance: DIAZEPAM
     Indication: Seizure
     Dosage: 1 SPRAY, AS NEEDED (PRN)
     Dates: start: 20240528, end: 20240705
  16. FELBATOL [Concomitant]
     Active Substance: FELBAMATE
     Indication: Product used for unknown indication
     Dosage: 400 MILLIGRAM, 3X/DAY (TID)
     Dates: start: 2022, end: 20240705
  17. NEURONTIN [Concomitant]
     Active Substance: GABAPENTIN
     Indication: Product used for unknown indication
     Dosage: 150 MILLIGRAM, 2X/DAY (BID)
     Route: 048
     Dates: start: 20240520, end: 20240705
  18. LAMOTRIGINE [Concomitant]
     Active Substance: LAMOTRIGINE
     Indication: Product used for unknown indication
     Dosage: 150 MILLIGRAM, 2X/DAY (BID)
     Dates: start: 20240528, end: 20240705
  19. LAMOTRIGINE [Concomitant]
     Active Substance: LAMOTRIGINE
     Dosage: 25 MILLIGRAM, 3X/DAY (TID)
     Dates: start: 20240528, end: 20240705
  20. ATIVAN [Concomitant]
     Active Substance: LORAZEPAM
     Indication: Product used for unknown indication
     Dosage: 1 TABLET, 3X/DAY (TID)
     Route: 048
     Dates: start: 20240520, end: 20240705
  21. ATIVAN [Concomitant]
     Active Substance: LORAZEPAM
     Dosage: 2 MILLILITERS, IF NEEDED
     Route: 048
     Dates: start: 20240520, end: 20240705
  22. ROBAXIN [Concomitant]
     Active Substance: METHOCARBAMOL
     Indication: Product used for unknown indication
     Dosage: 500 MILLIGRAM 4 TIMES DAILY  AS NEEDED
     Dates: start: 20240509
  23. NAYZILAM [Concomitant]
     Active Substance: MIDAZOLAM
     Indication: Seizure
     Dosage: 5 MILLIGRAM, AS NEEDED (PRN)
     Route: 045
  24. MYCOSTATIN [Concomitant]
     Active Substance: NYSTATIN
     Indication: Product used for unknown indication
     Dosage: UNK, 2X/DAY (BID)
     Route: 061
     Dates: start: 20240509
  25. ZOFRAN [Concomitant]
     Active Substance: ONDANSETRON HYDROCHLORIDE
     Indication: Product used for unknown indication
     Dosage: 4 MILLIGRAM EVERY 8 HOURS AS NEEDED
     Route: 048
     Dates: start: 20231121, end: 20240705
  26. SENOKOT-S [Concomitant]
     Active Substance: DOCUSATE SODIUM\SENNOSIDES
     Indication: Constipation
     Dosage: ONE TABLET DAILY, AS NEEDED (PRN)
     Route: 048
     Dates: start: 20230705
  27. ULTRAM [Concomitant]
     Active Substance: TRAMADOL HYDROCHLORIDE
     Indication: Product used for unknown indication
     Dosage: 50 MILLIGRAM, ONCE DAILY (QD)
     Route: 048
     Dates: start: 20240705
  28. DESYREL [Concomitant]
     Active Substance: TRAZODONE HYDROCHLORIDE
  29. DEPAKOTE [Concomitant]
     Active Substance: DIVALPROEX SODIUM
     Indication: Product used for unknown indication
     Dosage: UNK
     Route: 042
  30. KETOVIE 4:1 [Concomitant]
     Indication: Product used for unknown indication
     Dosage: 1 SHAKE, 3X/DAY (TID)

REACTIONS (15)
  - Seizure [Not Recovered/Not Resolved]
  - Tricuspid valve incompetence [Unknown]
  - Mitral valve incompetence [Unknown]
  - Pulmonary valve incompetence [Unknown]
  - Intracardiac mass [Not Recovered/Not Resolved]
  - Seizure cluster [Unknown]
  - Partial seizures [Unknown]
  - Petit mal epilepsy [Unknown]
  - Generalised tonic-clonic seizure [Unknown]
  - Hallucination [Unknown]
  - Migraine [Unknown]
  - Mucopolysaccharidosis III [Unknown]
  - Diplopia [Unknown]
  - Overdose [Unknown]
  - Inappropriate schedule of product administration [Unknown]

NARRATIVE: CASE EVENT DATE: 20230101
